FAERS Safety Report 16850265 (Version 4)
Quarter: 2021Q4

REPORT INFORMATION
  Report Type: Spontaneous
  Country: CN (occurrence: CN)
  Receive Date: 20190925
  Receipt Date: 20211026
  Transmission Date: 20220304
  Serious: Yes (Other)
  Sender: FDA-Public Use
  Company Number: CN-ROCHE-2408111

PATIENT
  Age: 71 Year
  Sex: Male

DRUGS (12)
  1. XELODA [Suspect]
     Active Substance: CAPECITABINE
     Indication: Adenocarcinoma of colon
     Route: 048
     Dates: start: 20151016, end: 20160207
  2. AVASTIN [Suspect]
     Active Substance: BEVACIZUMAB
     Indication: Adenocarcinoma of colon
     Route: 065
     Dates: start: 20190323
  3. OXALIPLATIN [Suspect]
     Active Substance: OXALIPLATIN
     Indication: Adenocarcinoma of colon
     Route: 065
     Dates: start: 20151016, end: 20160207
  4. IRINOTECAN [Suspect]
     Active Substance: IRINOTECAN
     Indication: Adenocarcinoma of colon
     Route: 065
     Dates: start: 20190323
  5. IRINOTECAN [Suspect]
     Active Substance: IRINOTECAN
     Route: 065
     Dates: start: 20190517
  6. IRINOTECAN [Suspect]
     Active Substance: IRINOTECAN
     Route: 065
     Dates: start: 20190723
  7. FLUOROURACIL [Suspect]
     Active Substance: FLUOROURACIL
     Indication: Adenocarcinoma of colon
     Dosage: 400MG/M 2 ON DAY 1 VIA INTRAVENOUS INJECTION AND 2400 MG/M 2 CONTINUOUS INTRAVENOUS INJECTION FOR 46
     Route: 042
     Dates: start: 20190323
  8. FLUOROURACIL [Suspect]
     Active Substance: FLUOROURACIL
     Dosage: 500 MG ON DYA 1 AND 4250 MG CONTINUOUS INTRAVENOUS INJECTION FOR 46 HOURS
     Route: 042
     Dates: start: 20190517
  9. FLUOROURACIL [Suspect]
     Active Substance: FLUOROURACIL
     Dosage: 400MG/M 2 ON DAY 1 VIA INTRAVENOUS INJECTION AND 2400 MG/M 2 CONTINUOUS INTRAVENOUS INJECTION FOR 46
     Route: 042
     Dates: start: 20190723
  10. LEUCOVORIN CALCIUM [Suspect]
     Active Substance: LEUCOVORIN CALCIUM
     Indication: Adenocarcinoma of colon
     Route: 065
     Dates: start: 20190323
  11. LEUCOVORIN CALCIUM [Suspect]
     Active Substance: LEUCOVORIN CALCIUM
     Route: 065
     Dates: start: 20190517
  12. LEUCOVORIN CALCIUM [Suspect]
     Active Substance: LEUCOVORIN CALCIUM
     Route: 065
     Dates: start: 20190723

REACTIONS (6)
  - Gastrointestinal disorder [Unknown]
  - Myelosuppression [Unknown]
  - Liver injury [Unknown]
  - Neurotoxicity [Unknown]
  - Asthenia [Unknown]
  - Proteinuria [Unknown]

NARRATIVE: CASE EVENT DATE: 20190101
